FAERS Safety Report 18869354 (Version 1)
Quarter: 2021Q1

REPORT INFORMATION
  Report Type: Report from Study
  Country: CA (occurrence: CA)
  Receive Date: 20210210
  Receipt Date: 20210210
  Transmission Date: 20210420
  Serious: Yes (Hospitalization)
  Sender: FDA-Public Use
  Company Number: CA-TAKEDA-2020TUS040592

PATIENT
  Age: 70 Year
  Sex: Male

DRUGS (19)
  1. LEVODOPA [Concomitant]
     Active Substance: LEVODOPA
     Indication: RESTLESS LEGS SYNDROME
     Dosage: 100 MILLIGRAM, TID
     Route: 065
     Dates: start: 20180302
  2. SINEMET [Concomitant]
     Active Substance: CARBIDOPA\LEVODOPA
     Dosage: UNK
     Route: 065
     Dates: end: 201802
  3. POMALYST [Suspect]
     Active Substance: POMALIDOMIDE
     Indication: PLASMA CELL MYELOMA
     Dosage: UNK
     Route: 065
     Dates: start: 20170721
  4. STEMETIL                           /00013301/ [Concomitant]
     Active Substance: PROCHLORPERAZINE
     Dosage: 10 MILLIGRAM
     Route: 065
     Dates: start: 20180425
  5. CARBIDOPA. [Concomitant]
     Active Substance: CARBIDOPA
     Indication: TREMOR
  6. CYANOCOBALAMIN. [Concomitant]
     Active Substance: CYANOCOBALAMIN
     Dosage: 1200 MICROGRAM
     Route: 065
     Dates: start: 20180304
  7. SINEMET [Concomitant]
     Active Substance: CARBIDOPA\LEVODOPA
     Dosage: UNK UNK, TID
     Route: 065
     Dates: start: 20181003
  8. CARBIDOPA. [Concomitant]
     Active Substance: CARBIDOPA
     Indication: RESTLESS LEGS SYNDROME
     Dosage: 25 MILLIGRAM, TID
     Route: 065
     Dates: start: 20180302
  9. IXAZOMIB [Suspect]
     Active Substance: IXAZOMIB
     Indication: PLASMA CELL MYELOMA
     Dosage: 3 MILLIGRAM
     Route: 048
     Dates: start: 20170721
  10. DOMPERIDONE [Concomitant]
     Active Substance: DOMPERIDONE
     Dosage: UNK
     Route: 065
     Dates: end: 20171012
  11. DOMPERIDONE [Concomitant]
     Active Substance: DOMPERIDONE
     Dosage: 5 MILLIGRAM, QID
     Route: 065
     Dates: start: 20180425, end: 20191114
  12. STEMETIL                           /00013301/ [Concomitant]
     Active Substance: PROCHLORPERAZINE
     Indication: RESTLESS LEGS SYNDROME
     Dosage: UNK UNK, TID
     Route: 065
     Dates: start: 20180326
  13. LEVODOPA [Concomitant]
     Active Substance: LEVODOPA
     Indication: TREMOR
  14. DEXAMETHASONE. [Suspect]
     Active Substance: DEXAMETHASONE
     Dosage: 12 MILLIGRAM, 1/WEEK
     Route: 065
     Dates: start: 20180330
  15. FOLIC ACID. [Concomitant]
     Active Substance: FOLIC ACID
     Dosage: 5 MILLIGRAM, QD
     Route: 065
     Dates: start: 20180302
  16. STEMETIL                           /00013301/ [Concomitant]
     Active Substance: PROCHLORPERAZINE
     Indication: TREMOR
     Dosage: 10 MILLIGRAM, Q6HR
     Dates: start: 20171020, end: 20180216
  17. THIAMINE. [Concomitant]
     Active Substance: THIAMINE
     Dosage: 900 MILLIGRAM, QD
     Route: 065
     Dates: start: 20180302
  18. DEXAMETHASONE. [Suspect]
     Active Substance: DEXAMETHASONE
     Indication: PLASMA CELL MYELOMA
     Dosage: UNK
     Route: 065
     Dates: start: 20170721
  19. SINEMET [Concomitant]
     Active Substance: CARBIDOPA\LEVODOPA
     Dosage: UNK UNK, TID
     Dates: start: 20180517

REACTIONS (6)
  - Headache [Recovered/Resolved]
  - Cough [None]
  - Folliculitis [Recovered/Resolved]
  - SARS-CoV-2 test positive [Unknown]
  - Blood pressure increased [Recovered/Resolved]
  - Dyspnoea [Unknown]

NARRATIVE: CASE EVENT DATE: 20210127
